FAERS Safety Report 9577621 (Version 1)
Quarter: 2013Q4

REPORT INFORMATION
  Report Type: Spontaneous
  Country: US (occurrence: US)
  Receive Date: 20131001
  Receipt Date: 20131001
  Transmission Date: 20140711
  Serious: No
  Sender: FDA-Public Use
  Company Number: US-AMGEN-USASP2013009134

PATIENT
  Sex: Female
  Weight: 65.76 kg

DRUGS (4)
  1. ENBREL [Suspect]
     Indication: RHEUMATOID ARTHRITIS
     Dosage: 50 MG, 2 TIMES/WK AS DIRECTED
     Route: 058
     Dates: start: 2007
  2. HUMIRA [Concomitant]
     Dosage: 40MG/0.8
  3. CALCIUM [Concomitant]
     Dosage: 500 UNK, UNK
  4. MULTIVITAMINS, PLAIN [Concomitant]
     Dosage: UNK

REACTIONS (1)
  - Drug ineffective [Unknown]
